FAERS Safety Report 11966361 (Version 2)
Quarter: 2016Q1

REPORT INFORMATION
  Report Type: Spontaneous
  Country: US (occurrence: US)
  Receive Date: 20160127
  Receipt Date: 20160307
  Transmission Date: 20160526
  Serious: Yes (Death, Hospitalization, Other)
  Sender: FDA-Public Use
  Company Number: US-PFIZER INC-2016043285

PATIENT
  Age: 86 Year
  Sex: Female

DRUGS (4)
  1. ULORIC [Suspect]
     Active Substance: FEBUXOSTAT
     Indication: FLUID RETENTION
     Dosage: 80 MG, UNK
  2. REVATIO [Suspect]
     Active Substance: SILDENAFIL CITRATE
     Dosage: UNK
  3. REVATIO [Suspect]
     Active Substance: SILDENAFIL CITRATE
     Indication: PULMONARY HYPERTENSION
     Dosage: UNK
  4. EPLERENONE. [Suspect]
     Active Substance: EPLERENONE
     Dosage: 25 MG, UNK

REACTIONS (1)
  - Death [Fatal]
